FAERS Safety Report 5159444-5 (Version None)
Quarter: 2006Q4

REPORT INFORMATION
  Report Type: 
  Country: None (occurrence: None)
  Receive Date: 20061122
  Receipt Date: 20061122
  Transmission Date: 20070319
  Serious: Yes (Other)
  Sender: FDA-Public Use
  Company Number: None

PATIENT
  Age: 81 Year
  Sex: Female

DRUGS (7)
  1. DETROL LA [Suspect]
     Indication: URINARY INCONTINENCE
     Dosage: ORAL; 2.0 MILLIGRAM
     Route: 048
     Dates: start: 20060608, end: 20060912
  2. LEVOTHYROXINE SODIUM [Concomitant]
  3. LORATADINE [Concomitant]
  4. SALMON OIL [Concomitant]
  5. ALENDRONATE SODIUM [Concomitant]
  6. BRIMONIDINE TARTRATE [Concomitant]
  7. COSOPT [Concomitant]

REACTIONS (2)
  - RASH [None]
  - URTICARIA [None]
